FAERS Safety Report 8418696 (Version 5)
Quarter: 2013Q1

REPORT INFORMATION
  Report Type: Spontaneous
  Country: US (occurrence: US)
  Receive Date: 20120221
  Receipt Date: 20130321
  Transmission Date: 20140127
  Serious: Yes (Hospitalization, Other)
  Sender: FDA-Public Use
  Company Number: US-GLAXOSMITHKLINE-A0958483A

PATIENT
  Sex: Female

DRUGS (5)
  1. ADVAIR [Suspect]
     Indication: CHRONIC OBSTRUCTIVE PULMONARY DISEASE
     Route: 055
  2. VENTOLIN HFA [Suspect]
     Indication: CHRONIC OBSTRUCTIVE PULMONARY DISEASE
     Route: 055
  3. BI-PAP [Suspect]
     Indication: PRODUCT USED FOR UNKNOWN INDICATION
     Route: 065
  4. SALMETEROL [Concomitant]
  5. PREDNISONE [Concomitant]

REACTIONS (13)
  - Atrial fibrillation [Unknown]
  - Pulmonary hypertension [Unknown]
  - Candida infection [Unknown]
  - Respiratory disorder [Unknown]
  - Condition aggravated [Unknown]
  - Cardiovascular disorder [Unknown]
  - Hypercapnia [Unknown]
  - Drug administration error [Unknown]
  - Panic reaction [Unknown]
  - Chronic obstructive pulmonary disease [Unknown]
  - Insomnia [Unknown]
  - Memory impairment [Unknown]
  - Drug ineffective [Unknown]
